FAERS Safety Report 16698422 (Version 1)
Quarter: 2019Q3

REPORT INFORMATION
  Report Type: Spontaneous
  Country: US (occurrence: US)
  Receive Date: 20190813
  Receipt Date: 20190813
  Transmission Date: 20191004
  Serious: Yes (Death)
  Sender: FDA-Public Use
  Company Number: US-BAUSCH-BL-2019-022853

PATIENT
  Sex: Male

DRUGS (1)
  1. XIFAXAN [Suspect]
     Active Substance: RIFAXIMIN
     Indication: HEPATIC ENCEPHALOPATHY PROPHYLAXIS
     Dosage: AT LEAST A YEAR
     Route: 048
     Dates: start: 2018

REACTIONS (2)
  - Pneumonia [Fatal]
  - Hepatic cancer [Fatal]
